FAERS Safety Report 17478457 (Version 1)
Quarter: 2020Q1

REPORT INFORMATION
  Report Type: Report from Study
  Country: IE (occurrence: IE)
  Receive Date: 20200228
  Receipt Date: 20200228
  Transmission Date: 20200409
  Serious: Yes (Other)
  Sender: FDA-Public Use
  Company Number: IE-JNJFOC-20190917034

PATIENT
  Sex: Male

DRUGS (9)
  1. SIBELIUM [Concomitant]
     Route: 065
  2. NEXAZOLE [Concomitant]
     Route: 065
  3. CHOLESTAGEL [Concomitant]
     Active Substance: COLESEVELAM HYDROCHLORIDE
     Route: 065
  4. STELARA [Suspect]
     Active Substance: USTEKINUMAB
     Route: 058
  5. VENLAFEX XL [Concomitant]
     Active Substance: VENLAFAXINE HYDROCHLORIDE
     Route: 065
  6. CRESTOR [Concomitant]
     Active Substance: ROSUVASTATIN CALCIUM
  7. STELARA [Suspect]
     Active Substance: USTEKINUMAB
     Indication: CROHN^S DISEASE
     Route: 058
     Dates: start: 20190910
  8. NOVORAPID [Concomitant]
     Active Substance: INSULIN ASPART
     Route: 065
  9. LEVEMIR [Concomitant]
     Active Substance: INSULIN DETEMIR
     Route: 065

REACTIONS (4)
  - Crohn^s disease [Not Recovered/Not Resolved]
  - Product use issue [Unknown]
  - Pneumonia [Unknown]
  - Off label use [Unknown]

NARRATIVE: CASE EVENT DATE: 2019
